FAERS Safety Report 24029926 (Version 2)
Quarter: 2024Q4

REPORT INFORMATION
  Report Type: Spontaneous
  Country: US (occurrence: US)
  Receive Date: 20240628
  Receipt Date: 20241029
  Transmission Date: 20250115
  Serious: No
  Sender: MERZ
  Company Number: US-Merz Pharmaceuticals GmbH-24-02083

PATIENT

DRUGS (1)
  1. XEOMIN [Suspect]
     Active Substance: INCOBOTULINUMTOXINA
     Indication: Torticollis
     Dosage: 500 INTERNATIONAL UNIT
     Route: 030

REACTIONS (2)
  - Overdose [Unknown]
  - No adverse event [Unknown]
